FAERS Safety Report 5954102-9 (Version None)
Quarter: 2008Q4

REPORT INFORMATION
  Report Type: 
  Country: None (occurrence: None)
  Receive Date: 20081114
  Receipt Date: 20081105
  Transmission Date: 20090506
  Serious: Yes (Other)
  Sender: FDA-Public Use
  Company Number: US-ABBOTT-08P-163-0486069-00

PATIENT
  Sex: Female

DRUGS (6)
  1. SYNTHROID [Suspect]
     Indication: THYROID DISORDER
     Route: 048
  2. GALENIC /FLUTICASONE/SALMETEROL/ [Interacting]
     Indication: PNEUMONIA
     Route: 055
     Dates: start: 20070101, end: 20071201
  3. CELECOXIB [Concomitant]
     Indication: DRUG USE FOR UNKNOWN INDICATION
  4. BREVA [Concomitant]
     Indication: DRUG USE FOR UNKNOWN INDICATION
  5. NIFEDIPINE [Concomitant]
     Indication: DRUG USE FOR UNKNOWN INDICATION
  6. HYDROCHLOROTHIAZIDE [Concomitant]
     Indication: DRUG USE FOR UNKNOWN INDICATION

REACTIONS (11)
  - BLOOD CREATININE INCREASED [None]
  - CONFUSIONAL STATE [None]
  - CONSTIPATION [None]
  - DRUG INTERACTION [None]
  - DYSGRAPHIA [None]
  - FEELING ABNORMAL [None]
  - RENAL PAIN [None]
  - SLEEP DISORDER [None]
  - SOMNOLENCE [None]
  - TREMOR [None]
  - URINARY TRACT DISORDER [None]
